FAERS Safety Report 7917409-1 (Version None)
Quarter: 2011Q4

REPORT INFORMATION
  Report Type: 
  Country: None (occurrence: None)
  Receive Date: 20111116
  Receipt Date: 20111115
  Transmission Date: 20120403
  Serious: Yes (Other)
  Sender: FDA-Public Use
  Company Number: JP-PFIZER INC-2011279872

PATIENT
  Age: 78 Year
  Sex: Male

DRUGS (4)
  1. CARVEDILOL [Suspect]
     Indication: ANGINA PECTORIS
     Dosage: 7.5 MG, DAILY
     Route: 048
     Dates: start: 20101122
  2. LIPITOR [Suspect]
     Indication: HYPERCHOLESTEROLAEMIA
     Dosage: 10 MG DAILY
     Route: 048
     Dates: start: 20100703, end: 20111004
  3. PLAVIX [Suspect]
     Indication: ANTIPLATELET THERAPY
     Dosage: 75 MG DAILY
     Route: 048
     Dates: start: 20101122, end: 20111101
  4. AMARYL [Suspect]
     Indication: TYPE 2 DIABETES MELLITUS
     Dosage: 1 MG DAILY
     Route: 048

REACTIONS (2)
  - GLYCOSYLATED HAEMOGLOBIN INCREASED [None]
  - CORONARY ARTERIAL STENT INSERTION [None]
